FAERS Safety Report 6662786-5 (Version None)
Quarter: 2010Q2

REPORT INFORMATION
  Report Type: 
  Country: None (occurrence: None)
  Receive Date: 20100401
  Receipt Date: 20100323
  Transmission Date: 20101027
  Serious: No
  Sender: FDA-Public Use
  Company Number: US-BIOGENIDEC-2010BI009651

PATIENT
  Sex: Female

DRUGS (5)
  1. AVONEX [Suspect]
     Indication: MULTIPLE SCLEROSIS
     Route: 030
     Dates: start: 19970901, end: 20030830
  2. AVONEX [Suspect]
     Route: 030
     Dates: start: 20030830, end: 20071125
  3. AVONEX [Suspect]
     Route: 030
     Dates: start: 20081001
  4. SYMBALTA [Concomitant]
     Indication: MAJOR DEPRESSION
     Route: 048
     Dates: start: 20070101
  5. WELLBUTRIN [Concomitant]
     Indication: MAJOR DEPRESSION
     Route: 048
     Dates: start: 20070101

REACTIONS (16)
  - COORDINATION ABNORMAL [None]
  - GAIT DISTURBANCE [None]
  - HYPOAESTHESIA [None]
  - MULTIPLE SCLEROSIS RELAPSE [None]
  - MUSCLE SPASTICITY [None]
  - PAIN IN EXTREMITY [None]
  - RETINAL INJURY [None]
  - SENSORY DISTURBANCE [None]
  - TRIGEMINAL NEURALGIA [None]
  - URINARY INCONTINENCE [None]
  - VERTIGO [None]
  - VISION BLURRED [None]
  - VISUAL ACUITY REDUCED [None]
  - VISUAL IMPAIRMENT [None]
  - VITREOUS FLOATERS [None]
  - WEIGHT DECREASED [None]
